FAERS Safety Report 7563193-3 (Version None)
Quarter: 2011Q2

REPORT INFORMATION
  Report Type: 
  Country: None (occurrence: None)
  Receive Date: 20110621
  Receipt Date: 20110621
  Transmission Date: 20111010
  Serious: Yes (Other)
  Sender: FDA-Public Use
  Company Number: None

PATIENT

DRUGS (2)
  1. CREST W/ FLUORIDE [Suspect]
     Dates: start: 20100401, end: 20110620
  2. COLGATE [Suspect]

REACTIONS (3)
  - PRODUCT PACKAGING ISSUE [None]
  - PRODUCT CONTAMINATION [None]
  - MALAISE [None]
